FAERS Safety Report 5319133-0 (Version None)
Quarter: 2007Q2

REPORT INFORMATION
  Report Type: 
  Country: None (occurrence: None)
  Receive Date: 20070508
  Receipt Date: 20070503
  Transmission Date: 20071010
  Serious: Yes (Hospitalization)
  Sender: FDA-Public Use
  Company Number: FRWYE574703MAY07

PATIENT
  Age: 86 Year
  Sex: Female
  Weight: 52 kg

DRUGS (12)
  1. EFFEXOR [Suspect]
     Dosage: 100 MG TOTAL DAILY
     Route: 048
     Dates: end: 20070209
  2. TERCIAN [Interacting]
     Dosage: 10 DOSES TOTAL DAILY
     Route: 048
  3. ALDACTAZINE [Concomitant]
     Dosage: UNKNOWN
     Route: 048
  4. DIAMICRON [Concomitant]
     Dosage: UNKNOWN
     Route: 048
  5. LANTUS [Concomitant]
     Dosage: UNKNOWN
  6. SERC [Concomitant]
     Dosage: UNKNOWN
     Route: 048
  7. LOXEN [Concomitant]
     Dosage: UNKNOWN
  8. HEMIGOXINE NATIVELLE [Concomitant]
     Dosage: UNKNOWN
     Route: 048
  9. VASTEN [Concomitant]
     Dosage: UNKNOWN
     Route: 048
  10. MONICOR L.P. [Concomitant]
     Dosage: UNKNOWN
     Route: 048
  11. TRAMADOL HCL [Interacting]
     Route: 048
     Dates: end: 20070209
  12. KARDEGIC [Concomitant]
     Dosage: UNKNOWN
     Route: 048

REACTIONS (10)
  - CARDIAC MURMUR [None]
  - CAROTID BRUIT [None]
  - DISORIENTATION [None]
  - DRUG INTERACTION [None]
  - FALL [None]
  - HEAD INJURY [None]
  - INFLAMMATION [None]
  - NAUSEA [None]
  - URINARY RETENTION [None]
  - VOMITING [None]
